FAERS Safety Report 6702073-X (Version None)
Quarter: 2010Q2

REPORT INFORMATION
  Report Type: 
  Country: None (occurrence: None)
  Receive Date: 20100427
  Receipt Date: 20100412
  Transmission Date: 20101027
  Serious: Yes (Death, Hospitalization)
  Sender: FDA-Public Use
  Company Number: 2010AC000090

PATIENT
  Age: 75 Year
  Sex: Female

DRUGS (23)
  1. DIGOXIN [Suspect]
     Dosage: 0.125 MG;QD;PO
     Route: 048
     Dates: start: 20061012, end: 20070101
  2. DIGOXIN [Suspect]
     Dosage: 0.125 MG;UNKNOWN; PO
     Route: 048
     Dates: start: 20030416, end: 20070712
  3. GLIPIZIDE [Concomitant]
  4. COUMADIN [Concomitant]
  5. VYTORIN [Concomitant]
  6. LASIX [Concomitant]
  7. NORVASC [Concomitant]
  8. COZOLE [Concomitant]
  9. TRICOR [Concomitant]
  10. METOLAZONE [Concomitant]
  11. COREG [Concomitant]
  12. BALSALAZIDE [Concomitant]
  13. ACTONEL [Concomitant]
  14. VITAMIN K TAB [Concomitant]
  15. DARVOCET [Concomitant]
  16. ALTACE [Concomitant]
  17. FERROUS SULFATE TAB [Concomitant]
  18. LOPERAMIDE [Concomitant]
  19. BUMETANIDE [Concomitant]
  20. ACETAMINOPHEN [Concomitant]
  21. CODEINE SULFATE [Concomitant]
  22. EPOGEN [Concomitant]
  23. ATROPINE [Concomitant]

REACTIONS (49)
  - ABDOMINAL DISTENSION [None]
  - ABDOMINAL PAIN [None]
  - ABDOMINAL TENDERNESS [None]
  - ACUTE MYOCARDIAL INFARCTION [None]
  - AORTIC ARTERIOSCLEROSIS [None]
  - ARRHYTHMIA [None]
  - ARTHRALGIA [None]
  - ASTHENIA [None]
  - ATRIAL FIBRILLATION [None]
  - ATROPHY [None]
  - BETA HAEMOLYTIC STREPTOCOCCAL INFECTION [None]
  - BRADYCARDIA [None]
  - CARDIAC FAILURE CONGESTIVE [None]
  - CARDIOACTIVE DRUG LEVEL INCREASED [None]
  - CAROTID ARTERY STENOSIS [None]
  - COAGULOPATHY [None]
  - CULTURE URINE POSITIVE [None]
  - DECREASED APPETITE [None]
  - DEEP VEIN THROMBOSIS [None]
  - DEPRESSION [None]
  - DIABETES MELLITUS [None]
  - DIABETIC NEPHROPATHY [None]
  - DILATATION ATRIAL [None]
  - DILATATION VENTRICULAR [None]
  - ECONOMIC PROBLEM [None]
  - GALLBLADDER OPERATION [None]
  - GLYCOSYLATED HAEMOGLOBIN INCREASED [None]
  - ILEUS [None]
  - INTESTINAL OBSTRUCTION [None]
  - JOINT INJURY [None]
  - KNEE ARTHROPLASTY [None]
  - LEFT ATRIAL DILATATION [None]
  - LEFT VENTRICULAR DYSFUNCTION [None]
  - MALNUTRITION [None]
  - MITRAL VALVE INCOMPETENCE [None]
  - MULTIPLE INJURIES [None]
  - PAIN [None]
  - POST PROCEDURAL COMPLICATION [None]
  - PULMONARY HYPERTENSION [None]
  - PULMONARY VALVE INCOMPETENCE [None]
  - RENAL FAILURE ACUTE [None]
  - RENAL FAILURE CHRONIC [None]
  - RIGHT VENTRICULAR SYSTOLIC PRESSURE INCREASED [None]
  - ROAD TRAFFIC ACCIDENT [None]
  - TRICUSPID VALVE INCOMPETENCE [None]
  - UNEVALUABLE EVENT [None]
  - VENTRICULAR HYPOKINESIA [None]
  - VOMITING [None]
  - WEIGHT DECREASED [None]
